FAERS Safety Report 10080515 (Version 1)
Quarter: 2014Q2

REPORT INFORMATION
  Report Type: Report from Study
  Country: ZA (occurrence: ZA)
  Receive Date: 20140416
  Receipt Date: 20140416
  Transmission Date: 20141212
  Serious: Yes (Death, Hospitalization)
  Sender: FDA-Public Use
  Company Number: ZA-ROCHE-1380031

PATIENT
  Age: 60 Year
  Sex: Female

DRUGS (2)
  1. MIRCERA [Suspect]
     Indication: NEPHROGENIC ANAEMIA
     Route: 058
     Dates: start: 201304
  2. MIRCERA [Suspect]
     Route: 058
     Dates: start: 201201

REACTIONS (2)
  - Pneumonia [Not Recovered/Not Resolved]
  - Death [Fatal]
